FAERS Safety Report 9500665 (Version 1)
Quarter: 2013Q1

REPORT INFORMATION
  Report Type: Spontaneous
  Country: US (occurrence: None)
  Receive Date: 20130115
  Receipt Date: 20130115
  Transmission Date: 20140127
  Serious: No
  Sender: FDA-Public Use
  Company Number: 2012BAX015139

PATIENT
  Age: 59 Year
  Sex: Female
  Weight: 126.3 kg

DRUGS (10)
  1. GAMMAGARD LIQUID [Suspect]
     Indication: IMMUNODEFICIENCY COMMON VARIABLE
     Dosage: 21.4286 ML (75 ML, WEEKLY OR TWICE A WEEK, SUBCUTANEOUS)
     Route: 058
     Dates: start: 20120810, end: 20120810
  2. NOVOLOG (INSULIN ASPART) [Concomitant]
  3. METFORMIN (METFORMIN) [Concomitant]
  4. LASIX (FUROSEMIDE) [Concomitant]
  5. HYDROCHLOROTHIAZIDE (HYDROCHLOROTHIAZIDE) [Concomitant]
  6. MOBIC (MELOXICAM) [Concomitant]
  7. TRAMADOL (TRAMADOL) [Concomitant]
  8. LOTENSIN (CAPTOPRIL) [Concomitant]
  9. SYNTHROID (LEVOTHYROXINE SODIUM) [Concomitant]
  10. VITAMINS (VITAMINS NOS) [Concomitant]

REACTIONS (4)
  - Dyspnoea [None]
  - Generalised oedema [None]
  - Weight increased [None]
  - Device infusion issue [None]
